FAERS Safety Report 8811726 (Version 2)
Quarter: 2013Q1

REPORT INFORMATION
  Report Type: Spontaneous
  Country: GB (occurrence: None)
  Receive Date: 20120924
  Receipt Date: 20121120
  Transmission Date: 20140127
  Serious: Yes (Hospitalization, Other)
  Sender: FDA-Public Use
  Company Number: AUR-APL-2012-04004

PATIENT
  Age: 81 Year
  Sex: Male
  Weight: 62.9 kg

DRUGS (2)
  1. GABAPENTIN (GABAPENTIN) [Suspect]
     Indication: PRODUCT USED FOR UNKNOWN INDICATION
     Route: 048
  2. GABAPENTIN (GABAPENTIN) [Suspect]
     Indication: DIABETIC NEUROPATHY
     Route: 048

REACTIONS (13)
  - Amnesia [None]
  - Mental impairment [None]
  - Speech disorder [None]
  - Thinking abnormal [None]
  - Victim of crime [None]
  - Cerebrovascular accident [None]
  - Confusional state [None]
  - Fatigue [None]
  - Headache [None]
  - Vomiting [None]
  - Pyrexia [None]
  - Bradycardia [None]
  - Hypotension [None]
